FAERS Safety Report 8950816 (Version 1)
Quarter: 2012Q4

REPORT INFORMATION
  Report Type: 
  Country: FR (occurrence: FR)
  Receive Date: 20121206
  Receipt Date: 20121206
  Transmission Date: 20130627
  Serious: Yes (Hospitalization)
  Sender: FDA-Public Use
  Company Number: FR-CELGENEUS-056-20785-12113425

PATIENT
  Age: 77 Year
  Sex: Female

DRUGS (9)
  1. THALIDOMIDE CELGENE [Suspect]
     Indication: ORAL APHTHAE
     Dosage: 50 Milligram
     Route: 048
     Dates: start: 20120813, end: 20121020
  2. PRACTAZIN [Concomitant]
     Indication: DRUG USE FOR UNKNOWN INDICATION
     Dosage: .5 Milligram
     Route: 048
  3. EFFERALGAN CODEINE [Concomitant]
     Indication: DRUG USE FOR UNKNOWN INDICATION
     Dosage: 9 Gram
     Route: 048
  4. EFFERALGAN CODEINE [Concomitant]
     Dosage: 3 Gram
     Route: 048
  5. LEVOTHYROX [Concomitant]
     Indication: DRUG USE FOR UNKNOWN INDICATION
     Dosage: 175 Microgram
     Route: 048
  6. METFORMIN [Concomitant]
     Indication: DRUG USE FOR UNKNOWN INDICATION
     Dosage: 850 Microgram
     Route: 048
  7. DITROPAN [Concomitant]
     Indication: DRUG USE FOR UNKNOWN INDICATION
     Dosage: 5 Milligram
     Route: 048
  8. DITROPAN [Concomitant]
     Dosage: 10 Milligram
     Route: 048
  9. ACUITEL [Concomitant]
     Indication: DRUG USE FOR UNKNOWN INDICATION
     Dosage: 20 Milligram
     Route: 048

REACTIONS (1)
  - Cutaneous vasculitis [Not Recovered/Not Resolved]
